FAERS Safety Report 8258726-8 (Version None)
Quarter: 2012Q2

REPORT INFORMATION
  Report Type: 
  Country: None (occurrence: None)
  Receive Date: 20120404
  Receipt Date: 20120404
  Transmission Date: 20120825
  Serious: Yes (Life-Threatening, Hospitalization)
  Sender: FDA-Public Use
  Company Number: None

PATIENT
  Age: 18 Year
  Sex: Female
  Weight: 75.9 kg

DRUGS (1)
  1. LAMOTRGINE [Suspect]
     Indication: BIPOLAR DISORDER
     Dates: start: 20120223, end: 20120308

REACTIONS (4)
  - RENAL FAILURE ACUTE [None]
  - TOXIC EPIDERMAL NECROLYSIS [None]
  - STEVENS-JOHNSON SYNDROME [None]
  - URETHRAL OBSTRUCTION [None]
